FAERS Safety Report 24354523 (Version 3)
Quarter: 2025Q2

REPORT INFORMATION
  Report Type: Spontaneous
  Country: FI (occurrence: FI)
  Receive Date: 20240923
  Receipt Date: 20250414
  Transmission Date: 20250716
  Serious: Yes (Hospitalization, Other)
  Sender: APELLIS PHARMACEUTICALS
  Company Number: FI-BIOVITRUM-2024-FI-003253

PATIENT

DRUGS (11)
  1. PEGCETACOPLAN [Suspect]
     Active Substance: PEGCETACOPLAN
     Indication: Paroxysmal nocturnal haemoglobinuria
     Dosage: TWICE PER WEEK
     Route: 058
     Dates: start: 20231205
  2. ULTOMIRIS [Suspect]
     Active Substance: RAVULIZUMAB-CWVZ
  3. ELTROMBOPAG OLAMINE [Concomitant]
     Active Substance: ELTROMBOPAG OLAMINE
     Indication: Product used for unknown indication
  4. FOLIC ACID [Concomitant]
     Active Substance: FOLIC ACID
     Indication: Product used for unknown indication
  5. LYNESTRENOL [Concomitant]
     Active Substance: LYNESTRENOL
     Indication: Product used for unknown indication
  6. ACETAMINOPHEN [Concomitant]
     Active Substance: ACETAMINOPHEN
     Indication: Product used for unknown indication
  7. ASPIRIN [Concomitant]
     Active Substance: ASPIRIN
     Indication: Product used for unknown indication
  8. ALBUTEROL [Concomitant]
     Active Substance: ALBUTEROL
     Indication: Product used for unknown indication
     Route: 055
  9. CYCLOSPORINE [Concomitant]
     Active Substance: CYCLOSPORINE
  10. ELTROMBOPAG [Concomitant]
     Active Substance: ELTROMBOPAG
     Indication: Aplastic anaemia
  11. ENOXAPARIN [Concomitant]
     Active Substance: ENOXAPARIN
     Indication: Thrombosis prophylaxis

REACTIONS (1)
  - Meningococcal sepsis [Recovered/Resolved]

NARRATIVE: CASE EVENT DATE: 20240219
